FAERS Safety Report 12294550 (Version 1)
Quarter: 2016Q2

REPORT INFORMATION
  Report Type: Spontaneous
  Country: US (occurrence: US)
  Receive Date: 20160422
  Receipt Date: 20160422
  Transmission Date: 20160815
  Serious: No
  Sender: FDA-Public Use
  Company Number: US-009507513-1604USA007858

PATIENT
  Sex: Female

DRUGS (3)
  1. TOUJEO [Suspect]
     Active Substance: INSULIN GLARGINE
     Dosage: 35 UNITS
  2. JANUMET [Suspect]
     Active Substance: METFORMIN HYDROCHLORIDE\SITAGLIPTIN PHOSPHATE
     Dosage: UNK
  3. TOUJEO [Suspect]
     Active Substance: INSULIN GLARGINE
     Indication: BLOOD GLUCOSE FLUCTUATION
     Dosage: 30 UNITS

REACTIONS (1)
  - Blood glucose abnormal [Unknown]
